FAERS Safety Report 7944148-3 (Version None)
Quarter: 2011Q4

REPORT INFORMATION
  Report Type: 
  Country: None (occurrence: None)
  Receive Date: 20111129
  Receipt Date: 20111123
  Transmission Date: 20120403
  Serious: Yes (Death)
  Sender: FDA-Public Use
  Company Number: AU-BRISTOL-MYERS SQUIBB COMPANY-16244329

PATIENT

DRUGS (1)
  1. YERVOY [Suspect]
     Dates: start: 20110928

REACTIONS (1)
  - DEATH [None]
